FAERS Safety Report 21135329 (Version 3)
Quarter: 2022Q3

REPORT INFORMATION
  Report Type: Spontaneous
  Country: None (occurrence: CN)
  Receive Date: 20220727
  Receipt Date: 20220831
  Transmission Date: 20221027
  Serious: Yes (Life-Threatening)
  Sender: FDA-Public Use
  Company Number: CN-Jiangsu Hengrui Medicine Co., Ltd.-2131272

PATIENT
  Age: 38 Year
  Sex: Male

DRUGS (7)
  1. CISATRACURIUM BESYLATE [Suspect]
     Active Substance: CISATRACURIUM BESYLATE
     Indication: Induction of anaesthesia
     Dates: start: 20220713, end: 20220713
  2. SUFENTANIL [Suspect]
     Active Substance: SUFENTANIL
     Dates: start: 20220713, end: 20220713
  3. PROPOFOL [Suspect]
     Active Substance: PROPOFOL
     Dates: start: 20220713, end: 20220713
  4. DEXMEDETOMIDINE [Suspect]
     Active Substance: DEXMEDETOMIDINE
     Dates: start: 20220713, end: 20220713
  5. REMIMAZOLAM [Suspect]
     Active Substance: REMIMAZOLAM
     Dates: start: 20220713, end: 20220713
  6. ETOMIDATE [Suspect]
     Active Substance: ETOMIDATE
     Dates: start: 20220713, end: 20220713
  7. REMIFENTANIL [Suspect]
     Active Substance: REMIFENTANIL
     Dates: start: 20220713, end: 20220713

REACTIONS (1)
  - Pulmonary oedema [Recovering/Resolving]

NARRATIVE: CASE EVENT DATE: 20220713
